FAERS Safety Report 6635767-5 (Version None)
Quarter: 2010Q1

REPORT INFORMATION
  Report Type: 
  Country: None (occurrence: None)
  Receive Date: 20100316
  Receipt Date: 20100309
  Transmission Date: 20100710
  Serious: Yes (Other)
  Sender: FDA-Public Use
  Company Number: US-BIOGENIDEC-2006BI003202

PATIENT
  Age: 51 Year
  Sex: Female

DRUGS (3)
  1. AVONEX [Suspect]
     Indication: MULTIPLE SCLEROSIS
     Route: 030
     Dates: start: 19990412, end: 20010101
  2. AVONEX [Suspect]
     Route: 030
     Dates: start: 20060221, end: 20060228
  3. AVONEX [Suspect]
     Route: 030
     Dates: end: 20070101

REACTIONS (2)
  - MEMORY IMPAIRMENT [None]
  - PYREXIA [None]
